FAERS Safety Report 4417875-2 (Version None)
Quarter: 2004Q2

REPORT INFORMATION
  Report Type: 
  Country: None (occurrence: None)
  Receive Date: 20040621
  Receipt Date: 20040517
  Transmission Date: 20050107
  Serious: Yes (Life-Threatening, Hospitalization)
  Sender: FDA-Public Use
  Company Number: PHEH2004US04696

PATIENT
  Age: 75 Year
  Sex: Male
  Weight: 81.2 kg

DRUGS (6)
  1. ZOMETA [Suspect]
     Indication: METASTASES TO BONE
     Dosage: 4 MG, QMO, INTRAVENOUS
     Route: 042
     Dates: start: 20040129, end: 20040401
  2. IRESSA (GEFTINIB) [Concomitant]
  3. PROCRIT (ERYTHROPOIETIN) [Concomitant]
  4. MEGACE [Concomitant]
  5. METHADONE HCL [Concomitant]
  6. DILAUDID [Concomitant]

REACTIONS (4)
  - BLOOD CREATININE INCREASED [None]
  - DEHYDRATION [None]
  - HYPERKALAEMIA [None]
  - RENAL FAILURE ACUTE [None]
